FAERS Safety Report 21333330 (Version 2)
Quarter: 2023Q1

REPORT INFORMATION
  Report Type: Spontaneous
  Country: US (occurrence: US)
  Receive Date: 20220914
  Receipt Date: 20230206
  Transmission Date: 20230418
  Serious: No
  Sender: FDA-Public Use
  Company Number: US-PFIZER INC-202201156973

PATIENT
  Age: 81 Year
  Sex: Female

DRUGS (1)
  1. PAXLOVID [Suspect]
     Active Substance: NIRMATRELVIR\RITONAVIR
     Indication: COVID-19 treatment
     Dosage: 3 DF, 2X/DAY (3 TABLETS IN BUBBLE PACK TWICE DAY. 3 IN THE MORNING AND 3 IN THE EVENING)
     Dates: start: 20220910

REACTIONS (13)
  - Dysgeusia [Unknown]
  - Dry mouth [Unknown]
  - Decreased appetite [Recovering/Resolving]
  - Nausea [Recovered/Resolved]
  - Feeling abnormal [Unknown]
  - Malaise [Unknown]
  - Dehydration [Unknown]
  - Asthenia [Unknown]
  - Abdominal pain [Unknown]
  - Cold sweat [Unknown]
  - Pyrexia [Unknown]
  - Feeling hot [Unknown]
  - Incorrect dose administered [Unknown]

NARRATIVE: CASE EVENT DATE: 20220901
